FAERS Safety Report 8834483 (Version 2)
Quarter: 2012Q4

REPORT INFORMATION
  Report Type: Report from Study
  Country: JP (occurrence: JP)
  Receive Date: 20121010
  Receipt Date: 20121204
  Transmission Date: 20130627
  Serious: Yes (Other)
  Sender: FDA-Public Use
  Company Number: JP-VERTEX PHARMACEUTICAL INC.-AE-2012-007803

PATIENT
  Age: 48 Year
  Sex: Male

DRUGS (13)
  1. VX-950 (TELAPREVIR) [Suspect]
     Indication: CHRONIC HEPATITIS C
     Dosage: 2250 mg, qd
     Route: 048
     Dates: start: 20120407, end: 20120630
  2. RIBAVIRIN [Suspect]
     Indication: CHRONIC HEPATITIS C
     Dosage: 800 mg, qd
     Route: 048
     Dates: start: 20120407, end: 20120512
  3. RIBAVIRIN [Suspect]
     Dosage: 600 mg, qd
     Route: 048
     Dates: start: 20120513, end: 20120908
  4. RIBAVIRIN [Suspect]
     Dosage: 800 mg, qd
     Route: 048
     Dates: start: 20120909, end: 20121005
  5. PEGINTERFERON ALFA-2B [Suspect]
     Indication: CHRONIC HEPATITIS C
     Dosage: 1.5 ?g/kg,qw
     Route: 058
     Dates: start: 20120407, end: 20120609
  6. PEGINTERFERON ALFA-2B [Suspect]
     Dosage: 1.2 ?g/kg, qw
     Route: 058
     Dates: start: 20120616
  7. PEGINTERFERON ALFA-2B [Suspect]
     Dosage: 1.25 ?g/kg, qw
     Route: 058
     Dates: end: 20120714
  8. PEGINTERFERON ALFA-2B [Suspect]
     Dosage: 0.625 ?g/kg, qw
     Route: 058
     Dates: start: 20120721, end: 20120929
  9. LENDORMIN [Concomitant]
     Dosage: 0.125 mg, qd
     Route: 048
  10. LENDORMIN [Concomitant]
     Dosage: 0.25 mg, qd
     Route: 048
  11. CELTECT [Concomitant]
     Dosage: 60 mg, qd
     Route: 048
     Dates: start: 20120407
  12. BRUFEN                             /00109201/ [Concomitant]
     Dosage: 400 mg, prn
     Route: 048
     Dates: start: 20120407
  13. TAKEPRON [Concomitant]
     Dosage: 15 mg, qd
     Route: 048

REACTIONS (1)
  - Neutrophil count decreased [Recovered/Resolved]
